FAERS Safety Report 7463671-1 (Version None)
Quarter: 2011Q2

REPORT INFORMATION
  Report Type: 
  Country: None (occurrence: None)
  Receive Date: 20110506
  Receipt Date: 20110503
  Transmission Date: 20111010
  Serious: Yes (Life-Threatening, Hospitalization, Other)
  Sender: FDA-Public Use
  Company Number: GB-MERCK-1105GBR00009

PATIENT
  Age: 79 Year
  Sex: Male

DRUGS (17)
  1. OMEPRAZOLE [Concomitant]
     Route: 065
  2. CANCIDAS [Suspect]
     Indication: CANDIDIASIS
     Route: 042
     Dates: start: 20110321, end: 20110405
  3. FUROSEMIDE [Concomitant]
     Route: 065
  4. GLICLAZIDE [Concomitant]
     Route: 065
  5. ATORVASTATIN [Concomitant]
     Route: 065
  6. POLYETHYLENE GLYCOL 3350 AND POTASSIUM CHLORIDE AND SODIUM BICARBONATE [Concomitant]
     Route: 065
  7. RAMIPRIL [Concomitant]
     Route: 065
  8. METRONIDAZOLE [Concomitant]
     Route: 065
  9. EZETIMIBE [Concomitant]
     Route: 065
  10. FLUTICASONE PROPIONATE AND SALMETEROL XINAFOATE [Concomitant]
     Route: 065
  11. GABAPENTIN [Concomitant]
     Route: 065
  12. TIOTROPIUM BROMIDE [Concomitant]
     Route: 065
  13. CEFUROXIME [Concomitant]
     Route: 065
  14. CITALOPRAM [Concomitant]
     Route: 065
  15. ISOSORBIDE MONONITRATE [Concomitant]
     Route: 065
  16. PREDNISOLONE [Concomitant]
     Route: 065
  17. WARFARIN [Concomitant]
     Route: 065
     Dates: end: 20110323

REACTIONS (2)
  - INTERNATIONAL NORMALISED RATIO INCREASED [None]
  - LIVER FUNCTION TEST ABNORMAL [None]
